FAERS Safety Report 20362691 (Version 1)
Quarter: 2022Q1

REPORT INFORMATION
  Report Type: Spontaneous
  Country: US (occurrence: None)
  Receive Date: 20220120
  Receipt Date: 20220120
  Transmission Date: 20220424
  Serious: Yes (Disabling)
  Sender: FDA-Public Use
  Company Number: None

PATIENT
  Age: 40 Year
  Sex: Female
  Weight: 85.05 kg

DRUGS (7)
  1. DULOXETINE [Suspect]
     Active Substance: DULOXETINE
     Indication: Depression
     Dosage: OTHER QUANTITY : 90 CAPSULE(S);?FREQUENCY : DAILY;?
     Route: 048
     Dates: start: 20201120, end: 20220101
  2. ESTROGENS [Concomitant]
     Active Substance: ESTROGENS
  3. gemfribrzil [Concomitant]
  4. METOPROLOL [Concomitant]
     Active Substance: METOPROLOL
  5. DILTIAZEM [Concomitant]
     Active Substance: DILTIAZEM
  6. OXYBUTYNIN [Concomitant]
     Active Substance: OXYBUTYNIN
  7. FISH OIL [Concomitant]
     Active Substance: FISH OIL

REACTIONS (8)
  - Skin burning sensation [None]
  - Rash [None]
  - Memory impairment [None]
  - Headache [None]
  - Hypersomnia [None]
  - Suicidal ideation [None]
  - Dry skin [None]
  - Pruritus [None]

NARRATIVE: CASE EVENT DATE: 20220101
